FAERS Safety Report 10144309 (Version 2)
Quarter: 2014Q3

REPORT INFORMATION
  Report Type: Report from Study
  Country: MX (occurrence: MX)
  Receive Date: 20140430
  Receipt Date: 20140816
  Transmission Date: 20150326
  Serious: Yes (Other)
  Sender: FDA-Public Use
  Company Number: MX-ABBVIE-14P-107-1230178-00

PATIENT
  Age: 54 Year
  Sex: Female
  Weight: 58.5 kg

DRUGS (11)
  1. MAGNESIUM VALPROATE [Concomitant]
     Indication: MIGRAINE
     Dates: start: 2012
  2. HUMIRA [Suspect]
     Active Substance: ADALIMUMAB
     Indication: RHEUMATOID ARTHRITIS
     Route: 048
     Dates: start: 20140219, end: 20140423
  3. CELEBREX [Concomitant]
     Active Substance: CELECOXIB
     Indication: RHEUMATOID ARTHRITIS
     Route: 048
     Dates: start: 2013
  4. AZULFIDINA [Concomitant]
     Indication: RHEUMATOID ARTHRITIS
     Route: 048
     Dates: start: 201403
  5. PREGABALIN. [Concomitant]
     Active Substance: PREGABALIN
     Indication: RHEUMATOID ARTHRITIS
     Route: 048
     Dates: start: 2013
  6. TERFAMEX [Concomitant]
     Indication: OBESITY
     Route: 048
     Dates: start: 201403
  7. KETOROLAC [Concomitant]
     Active Substance: KETOROLAC\KETOROLAC TROMETHAMINE
     Indication: MIGRAINE
     Dosage: ONLY IF INDOMETACIN DOES NOT HAVE EFFECT
     Route: 030
     Dates: start: 201311
  8. INDOMETACIN [Concomitant]
     Active Substance: INDOMETHACIN
     Indication: MIGRAINE
     Route: 048
     Dates: start: 201311
  9. TIBOLONE [Concomitant]
     Active Substance: TIBOLONE
     Indication: MENOPAUSE
     Route: 048
     Dates: start: 2013
  10. TOLTERODINE [Concomitant]
     Active Substance: TOLTERODINE
     Indication: MENOPAUSE
     Route: 048
     Dates: start: 2013
  11. LEVOTHYROXINE [Concomitant]
     Active Substance: LEVOTHYROXINE
     Indication: HYPOTHYROIDISM
     Dosage: 3/4 EVERY 24 H
     Route: 048
     Dates: start: 2013

REACTIONS (7)
  - Rash macular [Not Recovered/Not Resolved]
  - Skin burning sensation [Not Recovered/Not Resolved]
  - Skin papilloma [Not Recovered/Not Resolved]
  - Back pain [Not Recovered/Not Resolved]
  - Skin lesion [Not Recovered/Not Resolved]
  - Fatigue [Not Recovered/Not Resolved]
  - Melanocytic naevus [Unknown]

NARRATIVE: CASE EVENT DATE: 201402
